FAERS Safety Report 8920959 (Version 2)
Quarter: 2013Q1

REPORT INFORMATION
  Report Type: Spontaneous
  Country: US (occurrence: US)
  Receive Date: 20121122
  Receipt Date: 20130109
  Transmission Date: 20140127
  Serious: No
  Sender: FDA-Public Use
  Company Number: US-PFIZER INC-2012291703

PATIENT
  Age: 70 Year
  Sex: Female
  Weight: 63.95 kg

DRUGS (6)
  1. CHANTIX [Suspect]
     Indication: SMOKING CESSATION THERAPY
     Dosage: UNK
     Dates: start: 201210, end: 2012
  2. CHANTIX [Suspect]
     Dosage: 1 MG, 2X/DAY
     Dates: start: 2012
  3. SINGULAIR [Concomitant]
     Indication: ASTHMA
     Dosage: UNK
  4. PROAIR HFA [Concomitant]
     Dosage: UNK
  5. ADVAIR DISKUS [Concomitant]
     Dosage: UNK
  6. SPIRIVA [Concomitant]
     Indication: CHRONIC OBSTRUCTIVE PULMONARY DISEASE
     Dosage: UNK, DAILY

REACTIONS (5)
  - Flatulence [Unknown]
  - Nausea [Unknown]
  - Weight increased [Unknown]
  - Aggression [Unknown]
  - Therapeutic response unexpected [Unknown]
